FAERS Safety Report 9832738 (Version 2)
Quarter: 2014Q1

REPORT INFORMATION
  Report Type: Report from Study
  Country: US (occurrence: US)
  Receive Date: 20140121
  Receipt Date: 20140122
  Transmission Date: 20141002
  Serious: Yes (Other)
  Sender: FDA-Public Use
  Company Number: US-ABBVIE-14P-163-1189422-00

PATIENT
  Age: 47 Year
  Sex: Female

DRUGS (6)
  1. HUMIRA [Suspect]
     Indication: PSORIASIS
  2. NEXIUM [Concomitant]
     Indication: PRODUCT USED FOR UNKNOWN INDICATION
  3. AMBIEN CR [Concomitant]
     Indication: PRODUCT USED FOR UNKNOWN INDICATION
     Dosage: NIGHTLY
  4. BACLOFEN [Concomitant]
     Indication: MYALGIA
  5. BACLOFEN [Concomitant]
     Indication: SURGERY
  6. RELPAX [Concomitant]
     Indication: MIGRAINE

REACTIONS (8)
  - Hernia [Not Recovered/Not Resolved]
  - Incision site pain [Unknown]
  - Incision site oedema [Unknown]
  - Lower respiratory tract inflammation [Unknown]
  - Pulmonary congestion [Unknown]
  - Cough [Unknown]
  - Wheezing [Unknown]
  - Ear infection [Unknown]
